FAERS Safety Report 17387562 (Version 1)
Quarter: 2020Q1

REPORT INFORMATION
  Report Type: Spontaneous
  Country: US (occurrence: US)
  Receive Date: 20200206
  Receipt Date: 20200206
  Transmission Date: 20200409
  Serious: No
  Sender: FDA-Public Use
  Company Number: US-RADIUS HEALTH INC.-2019US004670

PATIENT
  Sex: Female

DRUGS (8)
  1. TYMLOS [Suspect]
     Active Substance: ABALOPARATIDE
     Indication: OSTEOPOROSIS POSTMENOPAUSAL
     Dosage: 80 MCG QD
     Route: 058
     Dates: start: 2018
  2. TYMLOS [Suspect]
     Active Substance: ABALOPARATIDE
     Dosage: 10 MCG, QD
     Route: 058
     Dates: start: 20180821, end: 20180902
  3. TYMLOS [Suspect]
     Active Substance: ABALOPARATIDE
     Dosage: 50 MCG, QD
     Route: 058
     Dates: start: 20180921, end: 20181125
  4. TYMLOS [Suspect]
     Active Substance: ABALOPARATIDE
     Dosage: 60 MCG, QD
     Route: 058
     Dates: start: 20181126, end: 20181216
  5. TYMLOS [Suspect]
     Active Substance: ABALOPARATIDE
     Dosage: 40 MCG, QD
     Route: 058
     Dates: start: 20180917, end: 20180920
  6. TYMLOS [Suspect]
     Active Substance: ABALOPARATIDE
     Dosage: 80 MCG, QD
     Route: 058
     Dates: start: 20181217
  7. TYMLOS [Suspect]
     Active Substance: ABALOPARATIDE
     Dosage: 20 MCG, QD
     Route: 058
     Dates: start: 20180903, end: 20180909
  8. TYMLOS [Suspect]
     Active Substance: ABALOPARATIDE
     Dosage: 30 MCG, QD
     Route: 058
     Dates: start: 20180910, end: 20180916

REACTIONS (10)
  - Product quality issue [Unknown]
  - Intentional product use issue [Unknown]
  - Tremor [Unknown]
  - Chest pain [Unknown]
  - Dizziness [Unknown]
  - Nausea [Unknown]
  - Musculoskeletal pain [Unknown]
  - Balance disorder [Unknown]
  - Back pain [Unknown]
  - Asthenia [Unknown]

NARRATIVE: CASE EVENT DATE: 2018
